FAERS Safety Report 21637348 (Version 1)
Quarter: 2022Q4

REPORT INFORMATION
  Report Type: Report from Study
  Country: CN (occurrence: CN)
  Receive Date: 20221124
  Receipt Date: 20221124
  Transmission Date: 20230113
  Serious: Yes (Other)
  Sender: FDA-Public Use
  Company Number: CN-SUN PHARMACEUTICAL INDUSTRIES LTD-2022R1-365340

PATIENT
  Age: 63 Year
  Sex: Male

DRUGS (2)
  1. DOXORUBICIN [Suspect]
     Active Substance: DOXORUBICIN
     Indication: Malignant fibrous histiocytoma
     Dosage: 40-50 MG/M2, ON DAY 1
     Route: 065
  2. CATEQUENTINIB [Suspect]
     Active Substance: CATEQUENTINIB
     Indication: Malignant fibrous histiocytoma
     Dosage: 12 MILLIGRAM, DAILY, ON DAYS 8-21
     Route: 065

REACTIONS (1)
  - Neoplasm progression [Unknown]
